FAERS Safety Report 7787768-1 (Version None)
Quarter: 2011Q3

REPORT INFORMATION
  Report Type: 
  Country: None (occurrence: None)
  Receive Date: 20110929
  Receipt Date: 20110923
  Transmission Date: 20111222
  Serious: Yes (Other)
  Sender: FDA-Public Use
  Company Number: US-RB-029704-11

PATIENT
  Age: 38 Year
  Sex: Male

DRUGS (1)
  1. SUBOXONE [Suspect]
     Indication: PRODUCT USED FOR UNKNOWN INDICATION
     Dosage: SUBOXONE FILM, DOSAGE UNKNOWN.
     Route: 065

REACTIONS (4)
  - HYPERTENSION [None]
  - GASTROENTERITIS VIRAL [None]
  - COLON CANCER [None]
  - HAEMATURIA [None]
